FAERS Safety Report 20372608 (Version 2)
Quarter: 2022Q1

REPORT INFORMATION
  Report Type: Spontaneous
  Country: US (occurrence: US)
  Receive Date: 20220125
  Receipt Date: 20220224
  Transmission Date: 20220423
  Serious: No
  Sender: FDA-Public Use
  Company Number: US-Blueprint Medicines Corporation-SP-US-2022-000138

PATIENT
  Sex: Male

DRUGS (1)
  1. AYVAKIT [Suspect]
     Active Substance: AVAPRITINIB
     Indication: Gastrointestinal stromal tumour
     Route: 048
     Dates: start: 20211119

REACTIONS (9)
  - Laboratory test abnormal [Not Recovered/Not Resolved]
  - Paraesthesia [Unknown]
  - Ocular icterus [Unknown]
  - Swelling face [Not Recovered/Not Resolved]
  - Taste disorder [Not Recovered/Not Resolved]
  - Hair colour changes [Not Recovered/Not Resolved]
  - Eye swelling [Unknown]
  - Memory impairment [Unknown]
  - Product dose omission issue [Unknown]
